FAERS Safety Report 14532379 (Version 1)
Quarter: 2018Q1

REPORT INFORMATION
  Report Type: Report from Study
  Country: US (occurrence: US)
  Receive Date: 20180214
  Receipt Date: 20180214
  Transmission Date: 20180509
  Serious: No
  Sender: FDA-Public Use
  Company Number: PHEH2018US006105

PATIENT

DRUGS (1)
  1. DOXEPIN HCL CAPSULES USP [Suspect]
     Active Substance: DOXEPIN HYDROCHLORIDE
     Indication: CHRONIC SPONTANEOUS URTICARIA
     Route: 065

REACTIONS (1)
  - Therapeutic response decreased [Unknown]
